FAERS Safety Report 15686203 (Version 3)
Quarter: 2019Q1

REPORT INFORMATION
  Report Type: Spontaneous
  Country: PT (occurrence: PT)
  Receive Date: 20181204
  Receipt Date: 20190116
  Transmission Date: 20190417
  Serious: Yes (Other)
  Sender: FDA-Public Use
  Company Number: PT-ASTRAZENECA-2018SF55708

PATIENT
  Age: 37 Year
  Sex: Male
  Weight: 118 kg

DRUGS (13)
  1. SERTRALINE [Suspect]
     Active Substance: SERTRALINE HYDROCHLORIDE
     Indication: ANXIETY DISORDER
     Dosage: 100.0MG UNKNOWN
     Route: 048
     Dates: start: 201711
  2. QUETIAPINE FUMARATE. [Suspect]
     Active Substance: QUETIAPINE FUMARATE
     Indication: SLEEP DISORDER
     Route: 048
  3. QUETIAPINE FUMARATE. [Suspect]
     Active Substance: QUETIAPINE FUMARATE
     Indication: SLEEP DISORDER
     Dosage: 25.0MG UNKNOWN
     Route: 048
     Dates: start: 201711
  4. QUETIAPINE FUMARATE. [Suspect]
     Active Substance: QUETIAPINE FUMARATE
     Indication: ANXIETY
     Route: 048
  5. DEPAKINE CHRONO [Suspect]
     Active Substance: VALPROATE SODIUM
     Indication: PRODUCT USED FOR UNKNOWN INDICATION
     Dosage: UNK
     Route: 065
  6. PERMADOZE [Concomitant]
     Route: 048
  7. DEPAKINE CHRONO [Suspect]
     Active Substance: VALPROATE SODIUM
     Indication: PRODUCT USED FOR UNKNOWN INDICATION
     Route: 065
  8. VICTAN [Suspect]
     Active Substance: ETHYL LOFLAZEPATE
     Indication: SLEEP DISORDER
     Route: 048
  9. VICTAN [Suspect]
     Active Substance: ETHYL LOFLAZEPATE
     Indication: SLEEP DISORDER
     Dosage: 2 MG INTERMITTENT, AS REQUIRED
     Route: 048
  10. VICTAN [Suspect]
     Active Substance: ETHYL LOFLAZEPATE
     Indication: ANXIETY
     Dosage: 2 MG INTERMITTENT, AS REQUIRED
     Route: 048
  11. FOLICIL [Concomitant]
     Active Substance: FOLIC ACID
     Dosage: UNK UNK, UNK
  12. QUETIAPINE FUMARATE. [Suspect]
     Active Substance: QUETIAPINE FUMARATE
     Indication: ANXIETY
     Dosage: 25.0MG UNKNOWN
     Route: 048
     Dates: start: 201711
  13. VICTAN [Suspect]
     Active Substance: ETHYL LOFLAZEPATE
     Indication: ANXIETY
     Route: 048

REACTIONS (19)
  - Decreased appetite [Recovered/Resolved]
  - Pressure of speech [Recovered/Resolved]
  - Amnesia [Recovered/Resolved]
  - Weight decreased [Recovered/Resolved]
  - Drug ineffective [Recovered/Resolved]
  - Mood swings [Recovered/Resolved]
  - Feeling abnormal [Recovered/Resolved]
  - Bipolar disorder [Recovered/Resolved]
  - Insomnia [Recovered/Resolved]
  - Depressed mood [Unknown]
  - Dysphoria [Recovered/Resolved]
  - Condition aggravated [Recovered/Resolved]
  - Disturbance in attention [Recovered/Resolved]
  - Irritability [Recovered/Resolved]
  - Asthenia [Recovered/Resolved]
  - Anxiety [Recovered/Resolved]
  - Anhedonia [Recovered/Resolved]
  - Aggression [Recovered/Resolved]
  - Patient isolation [Unknown]

NARRATIVE: CASE EVENT DATE: 201805
